FAERS Safety Report 5150429-1 (Version None)
Quarter: 2006Q4

REPORT INFORMATION
  Report Type: 
  Country: None (occurrence: None)
  Receive Date: 20061114
  Receipt Date: 20061024
  Transmission Date: 20070319
  Serious: Yes (Hospitalization)
  Sender: FDA-Public Use
  Company Number: JP-ROCHE-468554

PATIENT
  Age: 67 Year
  Sex: Male
  Weight: 62 kg

DRUGS (11)
  1. CAPECITABINE [Suspect]
     Indication: COLORECTAL CANCER
     Dosage: 2000 MG/M2 DAILY GIVEN IN 2 DIVIDED DOSES STARTING IN THE EVENING OF DAY 1 TO THE MORNING OF DAY 15+
     Route: 048
     Dates: start: 20061005, end: 20061012
  2. BEVACIZUMAB [Suspect]
     Indication: COLORECTAL CANCER
     Dosage: 7.5 MG/KG GIVEN ON DAY 1 OF THREE WEEK CYCLE AS PER PROTOCOL.
     Route: 042
     Dates: start: 20061005, end: 20061005
  3. OXALIPLATIN [Suspect]
     Indication: COLORECTAL CANCER
     Dosage: 130 MG/M2 GIVEN ON DAY 1 OF THREE WEEK CYCLE AS PER PROTOCOL.
     Route: 042
     Dates: start: 20061005, end: 20061005
  4. KYTRIL [Concomitant]
     Dates: start: 20061005, end: 20061005
  5. LOXONIN [Concomitant]
     Dosage: AS NEEDED.
     Dates: start: 20061007, end: 20061023
  6. DECADRON [Concomitant]
     Dates: start: 20061005, end: 20061005
  7. MAGNESIUM OXIDE [Concomitant]
     Dosage: DRUG REPORTED AS ^MAGMITT^.
     Dates: start: 20060923
  8. BIO-THREE [Concomitant]
     Dates: start: 20060923
  9. ZOFRAN ZIDIS [Concomitant]
     Dosage: DRUG REPORTED AS ^ZOFRAN ZYDIS^.
     Dates: start: 20061007, end: 20061011
  10. SELBEX [Concomitant]
     Dosage: AS NEEDED.
     Dates: start: 20061009, end: 20061023
  11. LENDORMIN [Concomitant]
     Dosage: AS NEEDED. DRUG REPORTED AS ^LENRORMIN^.
     Dates: start: 20061011, end: 20061013

REACTIONS (6)
  - EPIDIDYMITIS [None]
  - FATIGUE [None]
  - INGUINAL HERNIA [None]
  - MELAENA [None]
  - PYREXIA [None]
  - WOUND DEHISCENCE [None]
